FAERS Safety Report 20787673 (Version 2)
Quarter: 2022Q2

REPORT INFORMATION
  Report Type: Spontaneous
  Country: US (occurrence: None)
  Receive Date: 20220505
  Receipt Date: 20220511
  Transmission Date: 20220720
  Serious: Yes (Disabling)
  Sender: FDA-Public Use
  Company Number: US-ROCHE-3089321

PATIENT
  Sex: Female

DRUGS (3)
  1. ENSPRYNG [Suspect]
     Active Substance: SATRALIZUMAB-MWGE
     Indication: Neuromyelitis optica spectrum disorder
     Route: 065
     Dates: start: 202008
  2. PREDNISONE [Concomitant]
     Active Substance: PREDNISONE
  3. SOLIRIS [Concomitant]
     Active Substance: ECULIZUMAB

REACTIONS (1)
  - Optic neuritis [Unknown]
